FAERS Safety Report 21918257 (Version 5)
Quarter: 2023Q2

REPORT INFORMATION
  Report Type: Other
  Country: MX (occurrence: MX)
  Receive Date: 20230127
  Receipt Date: 20230509
  Transmission Date: 20230722
  Serious: Yes (Other)
  Sender: FDA-Public Use
  Company Number: MX-002147023-NVSC2022MX285651

PATIENT
  Age: 42 Year
  Sex: Female
  Weight: 74 kg

DRUGS (6)
  1. XOLAIR [Suspect]
     Active Substance: OMALIZUMAB
     Indication: Chronic spontaneous urticaria
     Dosage: 2 DOSAGE FORM (150 MG)
     Route: 058
     Dates: start: 20220929
  2. XOLAIR [Suspect]
     Active Substance: OMALIZUMAB
     Dosage: 1 DOSAGE FORM, BIW
     Route: 058
     Dates: start: 20221030
  3. XOLAIR [Suspect]
     Active Substance: OMALIZUMAB
     Dosage: 2 DOSAGE FORM (EVERY 28 DAYS)
     Route: 058
     Dates: start: 20221205
  4. ATARAX [Concomitant]
     Active Substance: HYDROXYZINE HYDROCHLORIDE
     Indication: Chronic spontaneous urticaria
     Dosage: 1 DOSAGE FORM, QD (10 MG, AT NIGHT)
     Dates: start: 202209
  5. RUPATADINE [Concomitant]
     Active Substance: RUPATADINE
     Indication: Chronic spontaneous urticaria
     Dates: start: 202212
  6. LORATADINE [Concomitant]
     Active Substance: LORATADINE
     Indication: Product used for unknown indication
     Dates: start: 20220611, end: 202210

REACTIONS (19)
  - Off label use [Unknown]
  - Product supply issue [Unknown]
  - Skin sensitisation [Unknown]
  - Inappropriate schedule of product administration [Unknown]
  - Skin lesion [Unknown]
  - Weight decreased [Unknown]
  - Swelling [Recovering/Resolving]
  - Urticaria [Unknown]
  - Back injury [Unknown]
  - Discomfort [Recovering/Resolving]
  - Insomnia [Unknown]
  - Urticaria [Recovered/Resolved]
  - Skin burning sensation [Unknown]
  - Blister [Unknown]
  - Pruritus [Unknown]
  - Feeling hot [Unknown]
  - Fatigue [Unknown]
  - Urticaria [Recovered/Resolved]
  - Suicidal ideation [Unknown]

NARRATIVE: CASE EVENT DATE: 20220930
